FAERS Safety Report 4862872-6 (Version None)
Quarter: 2005Q4

REPORT INFORMATION
  Report Type: 
  Country: None (occurrence: None)
  Receive Date: 20051221
  Receipt Date: 20051209
  Transmission Date: 20060501
  Serious: Yes (Death, Hospitalization)
  Sender: FDA-Public Use
  Company Number: US-SANOFI-SYNTHELABO-A03200504188

PATIENT
  Age: 73 Year
  Sex: Male
  Weight: 82 kg

DRUGS (10)
  1. PLAVIX [Suspect]
     Indication: MYOCARDIAL INFARCTION
     Route: 048
     Dates: start: 20051114, end: 20051114
  2. PLAVIX [Suspect]
     Route: 048
     Dates: start: 20051114
  3. HEPARIN [Suspect]
     Indication: ACUTE MYOCARDIAL INFARCTION
     Dosage: 4000 UNITS IV BOLUS
     Route: 042
     Dates: start: 20051114, end: 20051114
  4. REOPRO [Suspect]
     Indication: CATHETER RELATED COMPLICATION
     Route: 042
     Dates: start: 20051114, end: 20051114
  5. REOPRO [Suspect]
     Dosage: 0.6MG/HR INFUSION FOR 24 HOURS
     Route: 041
     Dates: start: 20051115, end: 20051115
  6. RAMIPRIL [Concomitant]
     Dosage: 5 TO 10MG QD
     Route: 065
     Dates: start: 20051114
  7. LIPITOR [Concomitant]
     Route: 048
     Dates: start: 20051114, end: 20051114
  8. ASPIRIN [Concomitant]
     Dosage: 81 TO 325MG
     Route: 048
  9. METOPROLOL [Concomitant]
     Dosage: 50 TO 100 MG
     Route: 048
  10. COLACE [Concomitant]
     Route: 048
     Dates: start: 20051114, end: 20051114

REACTIONS (3)
  - CARDIAC ARREST [None]
  - MYOCARDIAL RUPTURE [None]
  - PERICARDIAL EFFUSION [None]
